FAERS Safety Report 6071964-8 (Version None)
Quarter: 2009Q1

REPORT INFORMATION
  Report Type: 
  Country: None (occurrence: None)
  Receive Date: 20090205
  Receipt Date: 20090205
  Transmission Date: 20090719
  Serious: Yes (Other)
  Sender: FDA-Public Use
  Company Number: None

PATIENT
  Age: 41 Year
  Sex: Female
  Weight: 77.1115 kg

DRUGS (1)
  1. NABUMETONE [Suspect]
     Indication: BACK INJURY
     Dosage: 750 MG TWICE/DAY PO
     Route: 048
     Dates: start: 20080105, end: 20080124

REACTIONS (3)
  - ABDOMINAL PAIN UPPER [None]
  - NAUSEA [None]
  - TINNITUS [None]
